FAERS Safety Report 22890489 (Version 2)
Quarter: 2023Q4

REPORT INFORMATION
  Report Type: Spontaneous
  Country: EG (occurrence: EG)
  Receive Date: 20230831
  Receipt Date: 20231009
  Transmission Date: 20240109
  Serious: Yes (Other)
  Sender: FDA-Public Use
  Company Number: EG-PFIZER INC-PV202300145988

PATIENT
  Sex: Female

DRUGS (5)
  1. ENBREL [Suspect]
     Active Substance: ETANERCEPT
     Indication: Product used for unknown indication
     Dosage: 50 MG, WEEKLY
     Route: 058
     Dates: end: 20230820
  2. COLCHICINE [Concomitant]
     Active Substance: COLCHICINE
     Dosage: 1 DF, 1X/DAY (ONE TAB AFTER DINNER)
  3. LEFLUNOMIDE [Concomitant]
     Active Substance: LEFLUNOMIDE
     Dosage: 1 DF, 1X/DAY (ONE TAB AFTER LUNCH)
  4. GAPTIN [Concomitant]
     Dosage: 1 DF, 1X/DAY (ONE TAB BEFORE SLEEPING AT NIGHT)
  5. RECOXIBRIGHT [Concomitant]
     Dosage: 1 DF, 1X/DAY (ONE TAB AFTER BREAKFAST)

REACTIONS (3)
  - Ascites [Not Recovered/Not Resolved]
  - Peritonitis [Not Recovered/Not Resolved]
  - Influenza [Unknown]
